FAERS Safety Report 4387882-7 (Version None)
Quarter: 2004Q2

REPORT INFORMATION
  Report Type: 
  Country: None (occurrence: None)
  Receive Date: 20040607
  Receipt Date: 20031016
  Transmission Date: 20050107
  Serious: Yes (Other)
  Sender: FDA-Public Use
  Company Number: 349597

PATIENT

DRUGS (1)
  1. ACCUTANE [Suspect]
     Indication: ACNE
     Dosage: 40 MG 2 PER DAY ORAL
     Route: 048
     Dates: start: 19961115, end: 19970115

REACTIONS (3)
  - ABORTION SPONTANEOUS [None]
  - ADVERSE EVENT [None]
  - DEATH NEONATAL [None]
